FAERS Safety Report 7399112-2 (Version None)
Quarter: 2011Q2

REPORT INFORMATION
  Report Type: 
  Country: None (occurrence: None)
  Receive Date: 20110407
  Receipt Date: 20110405
  Transmission Date: 20111010
  Serious: Yes (Death, Disabling)
  Sender: FDA-Public Use
  Company Number: RU-SANOFI-AVENTIS-2011SA020558

PATIENT
  Age: 83 Year
  Sex: Male
  Weight: 105 kg

DRUGS (9)
  1. HYPOTHIAZID [Concomitant]
     Indication: HYPERTENSION
     Route: 048
     Dates: start: 20110215, end: 20110331
  2. DIROTON [Concomitant]
     Route: 048
     Dates: start: 20110215, end: 20110331
  3. GLIBENCLAMIDE [Concomitant]
     Indication: TYPE 2 DIABETES MELLITUS
     Route: 048
  4. FUROSEMIDE [Concomitant]
     Route: 042
     Dates: start: 20110322, end: 20110331
  5. CLEXANE [Suspect]
     Route: 058
     Dates: start: 20110322, end: 20110331
  6. DIROTON [Concomitant]
     Indication: HYPERTENSION
     Route: 048
     Dates: start: 20110215, end: 20110331
  7. GLYCERYL TRINITRATE [Concomitant]
     Route: 042
     Dates: start: 20110322, end: 20110331
  8. VEROSPIRON [Concomitant]
     Route: 048
     Dates: start: 20110322, end: 20110331
  9. HYPOTHIAZID [Concomitant]
     Route: 048
     Dates: start: 20110215, end: 20110331

REACTIONS (1)
  - ISCHAEMIC STROKE [None]
